FAERS Safety Report 7617458-7 (Version None)
Quarter: 2011Q3

REPORT INFORMATION
  Report Type: 
  Country: None (occurrence: None)
  Receive Date: 20110718
  Receipt Date: 20110714
  Transmission Date: 20111222
  Serious: No
  Sender: FDA-Public Use
  Company Number: US-PFIZER INC-2011146534

PATIENT
  Age: 75 Year
  Sex: Female

DRUGS (3)
  1. DOXEPIN HCL [Suspect]
     Indication: DEPRESSION
     Dosage: 10 MG, DAILY
     Dates: start: 20110101
  2. LIPITOR [Suspect]
     Indication: BLOOD CHOLESTEROL INCREASED
     Dosage: 40 MG, DAILY
  3. ALLEGRA [Suspect]
     Indication: HYPERSENSITIVITY
     Dosage: 60 MG, 1X/DAY
     Route: 048

REACTIONS (3)
  - INSOMNIA [None]
  - VISION BLURRED [None]
  - RASH [None]
